FAERS Safety Report 10042559 (Version 1)
Quarter: 2014Q1

REPORT INFORMATION
  Report Type: Spontaneous
  Country: US (occurrence: None)
  Receive Date: 20140325
  Receipt Date: 20140325
  Transmission Date: 20141002
  Serious: Yes (Hospitalization)
  Sender: FDA-Public Use
  Company Number: FK201400997

PATIENT
  Age: 65 Year
  Sex: Male

DRUGS (1)
  1. EPIRUBICIN [Suspect]
     Indication: HEPATOCELLULAR CARCINOMA
     Dosage: 3 TREATMENTS

REACTIONS (11)
  - Tuberculosis [None]
  - Joint swelling [None]
  - Synovial cyst [None]
  - Peritonitis bacterial [None]
  - Scar [None]
  - Rib fracture [None]
  - Haemoglobin decreased [None]
  - Platelet count decreased [None]
  - Blood glucose increased [None]
  - Hepatic failure [None]
  - Ascites [None]
